FAERS Safety Report 25307587 (Version 1)
Quarter: 2025Q2

REPORT INFORMATION
  Report Type: Spontaneous
  Country: AU (occurrence: AU)
  Receive Date: 20250513
  Receipt Date: 20250513
  Transmission Date: 20250717
  Serious: Yes (Other)
  Sender: GILEAD
  Company Number: AU-GILEAD-2025-0712724

PATIENT
  Age: 28 Year
  Sex: Female

DRUGS (4)
  1. DESCOVY [Suspect]
     Active Substance: EMTRICITABINE\TENOFOVIR ALAFENAMIDE FUMARATE
     Indication: HIV infection
     Route: 065
     Dates: start: 202308
  2. COTRIMOXAZOLE [Concomitant]
     Active Substance: SULFAMETHOXAZOLE\TRIMETHOPRIM
     Indication: Product used for unknown indication
     Dosage: CO-TRIMOXAZOLE 800/160 HALF TABLET DAILY
     Route: 065
  3. AZITHROMYCIN [Concomitant]
     Active Substance: AZITHROMYCIN
     Dosage: 1.2 G, Q1WK
  4. DOLUTEGRAVIR [Concomitant]
     Active Substance: DOLUTEGRAVIR

REACTIONS (7)
  - Lymphoma [Unknown]
  - Abortion spontaneous [Recovered/Resolved]
  - Immune reconstitution inflammatory syndrome [Unknown]
  - Hypersensitivity [Unknown]
  - CD4 lymphocytes decreased [Recovered/Resolved]
  - Adenoidal disorder [Unknown]
  - Maternal exposure during pregnancy [Recovered/Resolved]
